FAERS Safety Report 8392044-2 (Version None)
Quarter: 2012Q2

REPORT INFORMATION
  Report Type: 
  Country: None (occurrence: None)
  Receive Date: 20120529
  Receipt Date: 20120523
  Transmission Date: 20120825
  Serious: Yes (Death)
  Sender: FDA-Public Use
  Company Number: GB-ROCHE-1062815

PATIENT

DRUGS (2)
  1. LUCENTIS [Suspect]
     Route: 050
     Dates: start: 20110920
  2. LUCENTIS [Suspect]
     Indication: PRODUCT USED FOR UNKNOWN INDICATION
     Dosage: LAST INJECTION: 20/SEP/2011
     Route: 050

REACTIONS (5)
  - CARDIAC FAILURE CONGESTIVE [None]
  - AORTIC VALVE DISEASE [None]
  - LOBAR PNEUMONIA [None]
  - ANAEMIA [None]
  - MYOCARDIAL ISCHAEMIA [None]
